FAERS Safety Report 7015160-6 (Version None)
Quarter: 2010Q3

REPORT INFORMATION
  Report Type: 
  Country: None (occurrence: None)
  Receive Date: 20100927
  Receipt Date: 20100730
  Transmission Date: 20110219
  Serious: No
  Sender: FDA-Public Use
  Company Number: US-ASTRAZENECA-2010SE35735

PATIENT
  Sex: Female
  Weight: 63.5 kg

DRUGS (1)
  1. ARIMIDEX [Suspect]
     Indication: BREAST CANCER
     Route: 048

REACTIONS (4)
  - ASTHENIA [None]
  - FATIGUE [None]
  - HYPERTENSION [None]
  - SPONDYLITIS [None]
